FAERS Safety Report 5819219-8 (Version None)
Quarter: 2008Q3

REPORT INFORMATION
  Report Type: 
  Country: None (occurrence: None)
  Receive Date: 20080721
  Receipt Date: 20080721
  Transmission Date: 20090109
  Serious: Yes (Hospitalization)
  Sender: FDA-Public Use
  Company Number: None

PATIENT
  Age: 85 Year
  Sex: Male

DRUGS (2)
  1. NAFCILLIN SODIUM [Suspect]
     Indication: STAPHYLOCOCCAL BACTERAEMIA
     Dosage: 2 GM OTHER IV
     Route: 042
     Dates: start: 20080601, end: 20080702
  2. NAFCILLIN SODIUM [Suspect]
     Indication: STAPHYLOCOCCAL SEPSIS
     Dosage: 2 GM OTHER IV
     Route: 042
     Dates: start: 20080601, end: 20080702

REACTIONS (8)
  - BACTERIA STOOL IDENTIFIED [None]
  - BLOOD CREATINE INCREASED [None]
  - BLOOD UREA INCREASED [None]
  - CLOSTRIDIAL INFECTION [None]
  - CONFUSIONAL STATE [None]
  - DECREASED APPETITE [None]
  - DIARRHOEA [None]
  - LETHARGY [None]
